FAERS Safety Report 13617324 (Version 1)
Quarter: 2017Q2

REPORT INFORMATION
  Report Type: Spontaneous
  Country: US (occurrence: US)
  Receive Date: 20170606
  Receipt Date: 20170606
  Transmission Date: 20170830
  Serious: No
  Sender: FDA-Public Use
  Company Number: US-SA-2016SA215749

PATIENT
  Age: 17 Year
  Sex: Female

DRUGS (4)
  1. SOLOSTAR [Concomitant]
     Active Substance: DEVICE
     Route: 065
     Dates: start: 201609
  2. SOLOSTAR [Concomitant]
     Active Substance: DEVICE
     Indication: TYPE 2 DIABETES MELLITUS
     Route: 065
     Dates: start: 201609
  3. LANTUS SOLOSTAR [Suspect]
     Active Substance: INSULIN GLARGINE
     Indication: TYPE 2 DIABETES MELLITUS
     Dates: start: 201609
  4. APIDRA SOLOSTAR [Suspect]
     Active Substance: INSULIN GLULISINE
     Indication: TYPE 2 DIABETES MELLITUS
     Route: 065
     Dates: start: 201609

REACTIONS (3)
  - Headache [Unknown]
  - Drug ineffective [Unknown]
  - Incorrect dose administered [Unknown]
